FAERS Safety Report 26169406 (Version 1)
Quarter: 2025Q4

REPORT INFORMATION
  Report Type: Spontaneous
  Country: EU (occurrence: EU)
  Receive Date: 20251217
  Receipt Date: 20251217
  Transmission Date: 20260117
  Serious: Yes (Hospitalization, Other)
  Sender: DR REDDYS
  Company Number: None

PATIENT
  Age: 62 Year
  Sex: Female
  Weight: 72.1 kg

DRUGS (4)
  1. CYCLOPHOSPHAMIDE [Suspect]
     Active Substance: CYCLOPHOSPHAMIDE
     Indication: Non-Hodgkin^s lymphoma
     Dosage: 1ST CYCLE 21/08/2025 1313MG (750.29MG/M2); LAST 4TH CYCLE 27/10/2025
     Route: 042
     Dates: start: 20250821, end: 20251027
  2. DOXORUBICIN HYDROCHLORIDE [Suspect]
     Active Substance: DOXORUBICIN HYDROCHLORIDE
     Indication: Non-Hodgkin^s lymphoma
     Dosage: 1ST CYCLE 21/08/2025 88MG (50.29MG/M2); LAST 4TH CYCLE 27/10/2025
     Route: 042
     Dates: start: 20250821, end: 20251027
  3. ADCETRIS [Suspect]
     Active Substance: BRENTUXIMAB VEDOTIN
     Indication: Non-Hodgkin^s lymphoma
     Dosage: 1ST CYCLE 21/08/2025 125.5 MG VIAL (1.8 MG/KG); LAST 4TH CYCLE 27/10/2025
     Route: 042
     Dates: start: 20250821, end: 20251027
  4. PREDNISONE [Concomitant]
     Active Substance: PREDNISONE
     Indication: Non-Hodgkin^s lymphoma
     Dosage: CYCLE 1: AUGUST 21, 2025, 100MG (57.14 MG/M?); LAST (4TH) CYCLE: OCTOBER 27, 2025
     Route: 048
     Dates: start: 20250821, end: 20251027

REACTIONS (6)
  - Vomiting [Recovered/Resolved]
  - Diarrhoea [Recovered/Resolved]
  - Hemiparaesthesia [Recovering/Resolving]
  - Hemihypoaesthesia [Recovering/Resolving]
  - Agranulocytosis [Recovered/Resolved]
  - Anaemia [Recovered/Resolved]

NARRATIVE: CASE EVENT DATE: 20251028
